FAERS Safety Report 5419435-3 (Version None)
Quarter: 2007Q3

REPORT INFORMATION
  Report Type: 
  Country: None (occurrence: None)
  Receive Date: 20070820
  Receipt Date: 20070810
  Transmission Date: 20080115
  Serious: Yes (Other)
  Sender: FDA-Public Use
  Company Number: B0480872A

PATIENT
  Age: 88 Year
  Sex: Female
  Weight: 34 kg

DRUGS (8)
  1. PAXIL [Suspect]
     Indication: DEPRESSION
     Dosage: 20MG PER DAY
     Route: 048
     Dates: start: 20070706, end: 20070719
  2. SELBEX [Concomitant]
     Indication: GASTRIC ULCER
     Dosage: 50MG PER DAY
     Route: 048
     Dates: start: 20070518
  3. GASTROM [Concomitant]
     Indication: GASTRIC ULCER
     Dosage: 1.5MG PER DAY
     Route: 048
     Dates: start: 20070518
  4. PLAVIX [Concomitant]
     Indication: CEREBRAL INFARCTION
     Dosage: 50MG PER DAY
     Route: 048
     Dates: start: 20070522, end: 20070731
  5. ASPIRIN [Concomitant]
     Indication: CEREBRAL INFARCTION
     Dosage: 100MG PER DAY
     Route: 048
     Dates: start: 20070522, end: 20070731
  6. CIBENOL [Concomitant]
     Indication: ATRIAL FIBRILLATION
     Dosage: 300MG PER DAY
     Route: 048
     Dates: start: 20070515
  7. FAMOTIDINE [Concomitant]
     Indication: GASTRIC ULCER
     Dosage: 20MG PER DAY
     Route: 048
     Dates: start: 20070518
  8. ZOLPIDEM [Concomitant]
     Indication: INSOMNIA
     Dosage: 5MG PER DAY
     Route: 048
     Dates: start: 20070529

REACTIONS (3)
  - AMIMIA [None]
  - APATHY [None]
  - MASKED FACIES [None]
